FAERS Safety Report 19129940 (Version 3)
Quarter: 2021Q2

REPORT INFORMATION
  Report Type: Spontaneous
  Country: ES (occurrence: ES)
  Receive Date: 20210413
  Receipt Date: 20210512
  Transmission Date: 20210717
  Serious: Yes (Other)
  Sender: FDA-Public Use
  Company Number: ES-ORGANON-O2104ESP000984

PATIENT
  Age: 30 Year
  Sex: Female
  Weight: 59 kg

DRUGS (2)
  1. IMPLANON NXT [Suspect]
     Active Substance: ETONOGESTREL
     Indication: CONTRACEPTION
     Dosage: 1 IMPLANT
     Route: 059
  2. IMPLANON NXT [Suspect]
     Active Substance: ETONOGESTREL
     Indication: CONTRACEPTION
     Dosage: 1 IMPLANT, EVERY 3 YEARS
     Route: 059
     Dates: start: 20171115, end: 20210430

REACTIONS (7)
  - Device embolisation [Recovered/Resolved]
  - Complication associated with device [Recovered/Resolved]
  - Device placement issue [Recovered/Resolved]
  - Incorrect product administration duration [Unknown]
  - General anaesthesia [Recovered/Resolved]
  - Overdose [Unknown]
  - Surgery [Recovered/Resolved]

NARRATIVE: CASE EVENT DATE: 20201115
